FAERS Safety Report 4575757-X (Version None)
Quarter: 2005Q1

REPORT INFORMATION
  Report Type: 
  Country: None (occurrence: None)
  Receive Date: 20050209
  Receipt Date: 20050131
  Transmission Date: 20050727
  Serious: Yes (Other)
  Sender: FDA-Public Use
  Company Number: NL-SANOFI-SYNTHELABO-A01200500551

PATIENT
  Age: 65 Year

DRUGS (2)
  1. HYDROXYCHLOROQUINE SULFATE [Suspect]
     Indication: LUPUS NEPHRITIS
     Dosage: UNK
     Route: 065
  2. PREDNISONE [Suspect]
     Indication: LUPUS NEPHRITIS
     Dosage: UNK
     Route: 065

REACTIONS (2)
  - ABSCESS LIMB [None]
  - SALMONELLOSIS [None]
